FAERS Safety Report 6029441-6 (Version None)
Quarter: 2008Q4

REPORT INFORMATION
  Report Type: 
  Country: None (occurrence: None)
  Receive Date: 20081222
  Receipt Date: 20080826
  Transmission Date: 20090506
  Serious: No
  Sender: FDA-Public Use
  Company Number: ALL1-2008-02406

PATIENT

DRUGS (3)
  1. VYVANSE [Suspect]
     Dosage: 1X/DAY:QD, ORAL
     Route: 048
     Dates: start: 20070101
  2. STRATTERA [Concomitant]
  3. CIALIS [Concomitant]

REACTIONS (1)
  - DRUG ABUSE [None]
